FAERS Safety Report 16672572 (Version 2)
Quarter: 2019Q3

REPORT INFORMATION
  Report Type: Spontaneous
  Country: TH (occurrence: TH)
  Receive Date: 20190806
  Receipt Date: 20190913
  Transmission Date: 20191004
  Serious: Yes (Other)
  Sender: FDA-Public Use
  Company Number: TH-BAYER-2019-142093

PATIENT
  Age: 66 Year
  Sex: Male

DRUGS (1)
  1. NEXAVAR [Suspect]
     Active Substance: SORAFENIB
     Indication: HEPATOCELLULAR CARCINOMA
     Dosage: 800 MG PER DAY
     Dates: start: 20170817

REACTIONS (9)
  - Palmar-plantar erythrodysaesthesia syndrome [Not Recovered/Not Resolved]
  - Bile duct stone [None]
  - Abdominal pain [None]
  - Thrombocytopenia [Not Recovered/Not Resolved]
  - Escherichia sepsis [None]
  - Pyrexia [None]
  - Cholangitis infective [None]
  - Jaundice [None]
  - Diarrhoea [Not Recovered/Not Resolved]

NARRATIVE: CASE EVENT DATE: 2017
